FAERS Safety Report 13108077 (Version 1)
Quarter: 2017Q1

REPORT INFORMATION
  Report Type: Spontaneous
  Country: US (occurrence: US)
  Receive Date: 20170112
  Receipt Date: 20170112
  Transmission Date: 20170428
  Serious: No
  Sender: FDA-Public Use
  Company Number: US-PFIZER INC-2017007877

PATIENT
  Sex: Female

DRUGS (3)
  1. LYRICA [Suspect]
     Active Substance: PREGABALIN
     Dosage: UNK (HIGHER DOSE THAN 100 MG IN THE RED CAPSULE)
  2. IRON OXIDES [Suspect]
     Active Substance: FERRIC OXIDE RED
     Dosage: UNK
  3. LYRICA [Suspect]
     Active Substance: PREGABALIN
     Dosage: 100 MG, 3X/DAY

REACTIONS (4)
  - Disturbance in attention [Recovered/Resolved]
  - Pruritus [Unknown]
  - Reaction to drug excipients [Unknown]
  - Muscle spasms [Unknown]
